FAERS Safety Report 18411127 (Version 3)
Quarter: 2020Q4

REPORT INFORMATION
  Report Type: Spontaneous
  Country: US (occurrence: US)
  Receive Date: 20201021
  Receipt Date: 20201106
  Transmission Date: 20210114
  Serious: Yes (Other)
  Sender: FDA-Public Use
  Company Number: US-PFIZER INC-2016497791

PATIENT
  Age: 77 Year
  Sex: Female
  Weight: 78.91 kg

DRUGS (2)
  1. ARTHROTEC [Suspect]
     Active Substance: DICLOFENAC SODIUM\MISOPROSTOL
     Indication: PAIN
  2. ARTHROTEC [Suspect]
     Active Substance: DICLOFENAC SODIUM\MISOPROSTOL
     Indication: OSTEOARTHRITIS
     Dosage: 1 DF, 2X/DAY (TAKE 1 TABLET BY MOUTH 2 (TWO) TIMES DAILY)
     Route: 048
     Dates: start: 20161014

REACTIONS (3)
  - Product prescribing error [Unknown]
  - Haemorrhage [Unknown]
  - Abdominal pain upper [Unknown]
